FAERS Safety Report 6687021-3 (Version None)
Quarter: 2010Q2

REPORT INFORMATION
  Report Type: 
  Country: None (occurrence: None)
  Receive Date: 20100419
  Receipt Date: 20100409
  Transmission Date: 20101027
  Serious: Yes (Other)
  Sender: FDA-Public Use
  Company Number: US-ASTRAZENECA-2010SE15741

PATIENT
  Age: 56 Year
  Sex: Female

DRUGS (5)
  1. NEXIUM [Suspect]
     Indication: GASTROOESOPHAGEAL REFLUX DISEASE
     Route: 048
     Dates: start: 20060101, end: 20090101
  2. NEXIUM [Suspect]
     Route: 048
     Dates: start: 20090101, end: 20090101
  3. NEXIUM [Suspect]
     Route: 048
     Dates: start: 20090101
  4. ZYRTEC [Concomitant]
     Indication: HYPERSENSITIVITY
  5. BENICAR [Concomitant]
     Indication: BLOOD PRESSURE

REACTIONS (3)
  - DRUG DOSE OMISSION [None]
  - GASTROOESOPHAGEAL REFLUX DISEASE [None]
  - POLYP [None]
